FAERS Safety Report 6671430-2 (Version None)
Quarter: 2010Q2

REPORT INFORMATION
  Report Type: 
  Country: None (occurrence: None)
  Receive Date: 20100407
  Receipt Date: 20100329
  Transmission Date: 20101027
  Serious: Yes (Life-Threatening)
  Sender: FDA-Public Use
  Company Number: DE-ABBOTT-10P-062-0635181-00

PATIENT
  Age: 70 Year
  Sex: Male

DRUGS (1)
  1. ERGENYL TABLETS [Suspect]
     Indication: EPILEPSY
     Route: 048
     Dates: start: 20090701, end: 20100312

REACTIONS (3)
  - LIPASE INCREASED [None]
  - PANCREATITIS ACUTE [None]
  - SUBILEUS [None]
